FAERS Safety Report 17997624 (Version 2)
Quarter: 2020Q3

REPORT INFORMATION
  Report Type: Spontaneous
  Country: ES (occurrence: ES)
  Receive Date: 20200708
  Receipt Date: 20200710
  Transmission Date: 20201103
  Serious: Yes (Other)
  Sender: FDA-Public Use
  Company Number: ES-GILEAD-2020-0479500

PATIENT
  Age: 74 Year
  Sex: Female

DRUGS (14)
  1. SULPIRIDE [Concomitant]
     Active Substance: SULPIRIDE
     Dosage: 50 MG
     Route: 048
  2. CALCIUM CARBONATE. [Concomitant]
     Active Substance: CALCIUM CARBONATE
     Route: 048
  3. PROLIA [Concomitant]
     Active Substance: DENOSUMAB
     Indication: OSTEOPOROSIS
     Dosage: 60 MG
     Route: 030
  4. DOMPERIDONE [Concomitant]
     Active Substance: DOMPERIDONE
     Dosage: 5 MG
     Route: 048
  5. SULPIRIDE [Concomitant]
     Active Substance: SULPIRIDE
     Indication: PSYCHOTIC DISORDER
     Dosage: 50 MG, QD
     Route: 048
  6. RANEXA [Suspect]
     Active Substance: RANOLAZINE
     Indication: ANGINA PECTORIS
     Dosage: 375 MG, BID
     Route: 048
     Dates: start: 20190930, end: 20200630
  7. ACETYLSALICYLIC ACID [Concomitant]
     Active Substance: ASPIRIN
     Route: 048
  8. DENOSUMAB [Concomitant]
     Active Substance: DENOSUMAB
  9. OMEPRAZOLE. [Concomitant]
     Active Substance: OMEPRAZOLE
     Route: 048
  10. AMLODIPINE BESILATE;OLMESARTAN MEDOXOMIL [Concomitant]
     Active Substance: AMLODIPINE BESYLATE\OLMESARTAN MEDOXOMIL
     Dosage: 1 DOSAGE FORM, Q6MONTH
     Route: 030
  11. ADIRO [Concomitant]
     Active Substance: ASPIRIN
     Route: 048
  12. BALZAK [Concomitant]
     Active Substance: AMLODIPINE BESYLATE\OLMESARTAN MEDOXOMIL
     Indication: HYPERTENSION
     Dosage: 1 DOSAGE FORM ((20/5MG), QD
     Route: 048
  13. OMEPRAZOLE. [Concomitant]
     Active Substance: OMEPRAZOLE
     Route: 048
  14. DOMPERIDONE [Concomitant]
     Active Substance: DOMPERIDONE
     Route: 048

REACTIONS (1)
  - Hyperbilirubinaemia [Unknown]

NARRATIVE: CASE EVENT DATE: 20200630
